FAERS Safety Report 25452168 (Version 3)
Quarter: 2025Q3

REPORT INFORMATION
  Report Type: Report from Study
  Country: US (occurrence: US)
  Receive Date: 20250618
  Receipt Date: 20250917
  Transmission Date: 20251020
  Serious: Yes (Hospitalization, Other)
  Sender: PFIZER
  Company Number: US-PFIZER INC-202500111767

PATIENT
  Age: 47 Year
  Sex: Male

DRUGS (18)
  1. LORBRENA [Suspect]
     Active Substance: LORLATINIB
     Dosage: ONE 100MG TABLET
     Route: 048
     Dates: start: 20250407
  2. LORBRENA [Suspect]
     Active Substance: LORLATINIB
     Dosage: 100 MG, 1X/DAY (TAKE 1 TABLET DAILY)
     Route: 048
  3. LORBRENA [Suspect]
     Active Substance: LORLATINIB
     Dosage: THREE 25 MG TABLETS ORALLY DAILY
     Route: 048
  4. ESOMEPRAZOLE MAGNESIUM [Concomitant]
     Active Substance: ESOMEPRAZOLE MAGNESIUM
  5. CEFTRIAXONE [Concomitant]
     Active Substance: CEFTRIAXONE
  6. POLYETHYLENE GLYCOLS [Concomitant]
     Active Substance: POLYETHYLENE GLYCOLS
  7. ENOXAPARIN SODIUM [Concomitant]
     Active Substance: ENOXAPARIN SODIUM
  8. THIAMINE HYDROCHLORIDE [Concomitant]
     Active Substance: THIAMINE HYDROCHLORIDE
  9. SENNA S [Concomitant]
     Active Substance: DOCUSATE SODIUM\SENNOSIDES
  10. LEVETIRACETAM [Concomitant]
     Active Substance: LEVETIRACETAM
  11. SODIUM CHLORIDE [Concomitant]
     Active Substance: SODIUM CHLORIDE
  12. AZITHROMYCIN [Concomitant]
     Active Substance: AZITHROMYCIN
  13. ATORVASTATIN [Concomitant]
     Active Substance: ATORVASTATIN
  14. ASPIRIN [Concomitant]
     Active Substance: ASPIRIN
  15. ACETAMINOPHEN [Concomitant]
     Active Substance: ACETAMINOPHEN
  16. ONDANSETRON [Concomitant]
     Active Substance: ONDANSETRON
  17. PROCHLORPERAZINE [Concomitant]
     Active Substance: PROCHLORPERAZINE
  18. MELATONIN [Concomitant]
     Active Substance: MELATONIN

REACTIONS (4)
  - Hallucination [Recovering/Resolving]
  - Cerebrovascular accident [Recovering/Resolving]
  - Decreased interest [Not Recovered/Not Resolved]
  - Visual impairment [Not Recovered/Not Resolved]

NARRATIVE: CASE EVENT DATE: 20250501
